FAERS Safety Report 8954179 (Version 1)
Quarter: 2012Q4

REPORT INFORMATION
  Report Type: 
  Country: PH (occurrence: PH)
  Receive Date: 20121207
  Receipt Date: 20121207
  Transmission Date: 20130627
  Serious: Yes (Death, Hospitalization, Other)
  Sender: FDA-Public Use
  Company Number: PH-BAXTER-2012BAX025478

PATIENT
  Sex: Female
  Weight: 8 kg

DRUGS (21)
  1. DIANEAL PD2 WITH 1.5% DEXTROSE [Suspect]
     Indication: CHRONIC KIDNEY DISEASE
     Route: 033
     Dates: start: 20121107, end: 20121126
  2. DIANEAL PD2 WITH 1.5% DEXTROSE [Suspect]
     Indication: CAPD
  3. DIANEAL PD2 WITH 4.25% DEXTROSE [Suspect]
     Indication: CHRONIC KIDNEY DISEASE
     Route: 033
     Dates: start: 20121107, end: 20121126
  4. DIANEAL PD2 WITH 4.25% DEXTROSE [Suspect]
     Indication: CAPD
  5. NIFIDIPINE [Concomitant]
     Indication: DRUG USE FOR UNKNOWN INDICATION
     Route: 060
     Dates: start: 20121030
  6. CALCIUM GLUCONATE [Concomitant]
     Indication: DRUG USE FOR UNKNOWN INDICATION
     Route: 042
     Dates: start: 20121107
  7. CALCIUM GLUCONATE [Concomitant]
     Route: 042
     Dates: start: 20121102
  8. CEFAZOLINE [Concomitant]
     Indication: DRUG USE FOR UNKNOWN INDICATION
     Route: 042
     Dates: start: 20121110
  9. CEFAZOLINE [Concomitant]
     Route: 042
     Dates: start: 20121102
  10. MAALOX [Concomitant]
     Indication: DRUG USE FOR UNKNOWN INDICATION
     Route: 042
     Dates: start: 20121115
  11. MAALOX [Concomitant]
     Route: 042
     Dates: start: 20121102
  12. RANTIDINE [Concomitant]
     Indication: DRUG USE FOR UNKNOWN INDICATION
     Route: 042
  13. RANTIDINE [Concomitant]
     Route: 042
     Dates: start: 20121102
  14. PIPTAZO [Concomitant]
     Indication: DRUG USE FOR UNKNOWN INDICATION
     Route: 042
     Dates: start: 20121121
  15. PIPTAZO [Concomitant]
     Route: 042
     Dates: start: 20121102
  16. FLUCONAZOLE [Concomitant]
     Indication: DRUG USE FOR UNKNOWN INDICATION
     Route: 065
     Dates: start: 20121122
  17. FLUCONAZOLE [Concomitant]
     Route: 042
     Dates: start: 20121102
  18. VITAMIN K [Concomitant]
     Indication: DRUG USE FOR UNKNOWN INDICATION
     Route: 042
     Dates: start: 20121123
  19. VITAMIN K [Concomitant]
     Route: 042
     Dates: start: 20121102
  20. PARACETAMOL [Concomitant]
     Indication: DRUG USE FOR UNKNOWN INDICATION
     Route: 042
     Dates: start: 20121102
  21. PARACETAMOL [Concomitant]
     Route: 042
     Dates: start: 20121102

REACTIONS (7)
  - Septic shock [Fatal]
  - Cardiopulmonary failure [Fatal]
  - Nephrotic syndrome [Fatal]
  - Kidney small [Fatal]
  - Renal failure chronic [Fatal]
  - Pneumonia [Unknown]
  - Bradycardia [Unknown]
